FAERS Safety Report 6869116-4 (Version None)
Quarter: 2010Q3

REPORT INFORMATION
  Report Type: 
  Country: None (occurrence: None)
  Receive Date: 20100722
  Receipt Date: 20100722
  Transmission Date: 20110219
  Serious: Yes (Hospitalization)
  Sender: FDA-Public Use
  Company Number: None

PATIENT
  Age: 60 Year
  Sex: Female
  Weight: 69.8539 kg

DRUGS (14)
  1. IXABEPILONE [Suspect]
     Indication: ADENOID CYSTIC CARCINOMA
     Dosage: 40MG/M2 IV Q3WK
     Route: 042
     Dates: start: 20100409
  2. DASATINIB [Suspect]
     Dosage: 100MG PO DAILY
     Route: 048
     Dates: start: 20100409
  3. DASATINIB [Suspect]
     Dosage: 70MG PO DAILY
     Route: 048
     Dates: start: 20100706
  4. LOPERAMIDE [Concomitant]
  5. PROCHLORPERAZINE [Concomitant]
  6. ONDANSETRON [Concomitant]
  7. ACCUPRIL [Concomitant]
  8. ACTOPLUS MET [Concomitant]
  9. AMLODIPINE [Concomitant]
  10. ALLEGRA [Concomitant]
  11. ERGOCALCIFEROL [Concomitant]
  12. DIPHENHYDRAMINE [Concomitant]
  13. FAMOTIDINE [Concomitant]
  14. ONDANSETRON [Concomitant]

REACTIONS (4)
  - ATRIAL FIBRILLATION [None]
  - CHEST DISCOMFORT [None]
  - ELECTROCARDIOGRAM QT PROLONGED [None]
  - TACHYCARDIA [None]
